FAERS Safety Report 4930536-6 (Version None)
Quarter: 2006Q1

REPORT INFORMATION
  Report Type: 
  Country: None (occurrence: None)
  Receive Date: 20060302
  Receipt Date: 20050902
  Transmission Date: 20060701
  Serious: Yes (Hospitalization, Disabling, Other)
  Sender: FDA-Public Use
  Company Number: US-MERCK-0509USA00534

PATIENT
  Age: 59 Year
  Sex: Female
  Weight: 68 kg

DRUGS (2)
  1. VIOXX [Suspect]
     Indication: PAIN IN EXTREMITY
     Route: 048
     Dates: start: 20010322, end: 20040901
  2. TYLENOL (CAPLET) [Concomitant]
     Route: 065

REACTIONS (28)
  - ASTHMA [None]
  - BREAST DISORDER [None]
  - CHEST DISCOMFORT [None]
  - CHRONIC OBSTRUCTIVE PULMONARY DISEASE [None]
  - COLITIS ISCHAEMIC [None]
  - CONSTIPATION [None]
  - CORONARY ARTERY DISEASE [None]
  - COUGH [None]
  - DEPRESSION [None]
  - DIABETIC NEUROPATHY [None]
  - FATIGUE [None]
  - GASTROOESOPHAGEAL REFLUX DISEASE [None]
  - HAEMORRHOIDS [None]
  - HEART INJURY [None]
  - HIATUS HERNIA [None]
  - IMMUNE SYSTEM DISORDER [None]
  - LUNG DISORDER [None]
  - MEMORY IMPAIRMENT [None]
  - MIGRAINE [None]
  - MYOCARDIAL INFARCTION [None]
  - NECK PAIN [None]
  - POLYNEUROPATHY [None]
  - RECTAL HAEMORRHAGE [None]
  - RECTAL POLYP [None]
  - RESPIRATORY DISORDER [None]
  - SPINAL CORD DISORDER [None]
  - TRANSAMINASES INCREASED [None]
  - TREMOR [None]
